FAERS Safety Report 7910114-7 (Version None)
Quarter: 2011Q4

REPORT INFORMATION
  Report Type: 
  Country: None (occurrence: None)
  Receive Date: 20111111
  Receipt Date: 20111103
  Transmission Date: 20120403
  Serious: Yes (Hospitalization)
  Sender: FDA-Public Use
  Company Number: CHPA2011US015526

PATIENT
  Sex: Male

DRUGS (2)
  1. VOLTAREN [Suspect]
     Indication: OEDEMA PERIPHERAL
  2. VOLTAREN [Suspect]
     Indication: JOINT SWELLING
     Dosage: 4 G, ONCE A DAY
     Route: 061
     Dates: start: 20111026, end: 20111030

REACTIONS (6)
  - ERYTHEMA [None]
  - RASH [None]
  - HAEMORRHAGE [None]
  - PURULENT DISCHARGE [None]
  - OFF LABEL USE [None]
  - SKIN BURNING SENSATION [None]
